FAERS Safety Report 7386086-3 (Version None)
Quarter: 2011Q1

REPORT INFORMATION
  Report Type: 
  Country: None (occurrence: None)
  Receive Date: 20110331
  Receipt Date: 20110323
  Transmission Date: 20110831
  Serious: Yes (Hospitalization)
  Sender: FDA-Public Use
  Company Number: FR-SANOFI-AVENTIS-2011SA017969

PATIENT
  Age: 76 Year
  Sex: Male

DRUGS (5)
  1. DABIGATRAN ETEXILATE [Suspect]
     Route: 048
     Dates: start: 20110208, end: 20110301
  2. MOPRAL [Suspect]
     Route: 048
     Dates: start: 20110207, end: 20110301
  3. LASIX [Concomitant]
     Route: 048
  4. RIFADIN [Suspect]
     Route: 042
     Dates: start: 20110210, end: 20110301
  5. VANCOMYCINE [Suspect]
     Route: 042
     Dates: start: 20110210, end: 20110224

REACTIONS (5)
  - CLONUS [None]
  - GAMMA-GLUTAMYLTRANSFERASE INCREASED [None]
  - BLOOD CREATININE INCREASED [None]
  - DRUG RASH WITH EOSINOPHILIA AND SYSTEMIC SYMPTOMS [None]
  - RASH MACULO-PAPULAR [None]
